FAERS Safety Report 20412374 (Version 1)
Quarter: 2022Q1

REPORT INFORMATION
  Report Type: Spontaneous
  Country: US (occurrence: US)
  Receive Date: 20220201
  Receipt Date: 20220201
  Transmission Date: 20220423
  Serious: Yes (Other)
  Sender: FDA-Public Use
  Company Number: US-LUPIN PHARMACEUTICALS INC.-2022-01164

PATIENT
  Age: 37 Year
  Sex: Male
  Weight: 60 kg

DRUGS (7)
  1. QUETIAPINE FUMARATE [Suspect]
     Active Substance: QUETIAPINE FUMARATE
     Indication: Bickerstaff^s encephalitis
     Dosage: 300 MILLIGRAM, QD, UPTITRATED DOSE; INITIAL DOSE UNKNOWN
     Route: 065
  2. ZIPRASIDONE [Suspect]
     Active Substance: ZIPRASIDONE
     Indication: Bickerstaff^s encephalitis
     Dosage: 80 MILLIGRAM, QD, UPTITRATED DOSE; INITIAL DOSE UNKNOWN
     Route: 065
  3. CLONIDINE [Suspect]
     Active Substance: CLONIDINE
     Indication: Bickerstaff^s encephalitis
     Dosage: 0.3 MILLIGRAM, QD
  4. PRIVIGEN [Concomitant]
     Active Substance: HUMAN IMMUNOGLOBULIN G
     Indication: Bickerstaff^s encephalitis
     Dosage: DOSE: 0.4 G/KG/DAY
     Route: 042
  5. DEXMEDETOMIDINE [Concomitant]
     Active Substance: DEXMEDETOMIDINE
     Indication: Agitation
     Dosage: UPTITRATED DOSE; INITIAL DOSE UNKNOWN
     Route: 042
  6. VALPROIC ACID [Concomitant]
     Active Substance: VALPROIC ACID
     Indication: Product used for unknown indication
     Dosage: DOSE: 37.5MG/KG/DAY; UPTITRATED TO 2250MG
     Route: 065
  7. CLONAZEPAM [Concomitant]
     Active Substance: CLONAZEPAM
     Indication: Product used for unknown indication
     Dosage: 8 MILLIGRAM, QD, UPTITRATED DOSE; INITIAL DOSE UNKNOWN
     Route: 065

REACTIONS (4)
  - Hypotension [Unknown]
  - Bradycardia [Unknown]
  - Drug ineffective for unapproved indication [Unknown]
  - Off label use [Unknown]
